FAERS Safety Report 18170843 (Version 1)
Quarter: 2020Q3

REPORT INFORMATION
  Report Type: Report from Study
  Country: US (occurrence: US)
  Receive Date: 20200819
  Receipt Date: 20200819
  Transmission Date: 20201103
  Serious: Yes (Other)
  Sender: FDA-Public Use
  Company Number: NVSC2020US223316

PATIENT
  Age: 33 Year
  Sex: Female

DRUGS (1)
  1. GILENYA [Suspect]
     Active Substance: FINGOLIMOD HYDROCHLORIDE
     Indication: MULTIPLE SCLEROSIS
     Dosage: 0.5 MG, QD
     Route: 048

REACTIONS (9)
  - Fatigue [Unknown]
  - Optic neuritis [Unknown]
  - Fall [Unknown]
  - Pain [Unknown]
  - Colour blindness [Unknown]
  - Dizziness [Unknown]
  - Blindness [Unknown]
  - Multiple sclerosis [Unknown]
  - Visual impairment [Unknown]

NARRATIVE: CASE EVENT DATE: 201910
